FAERS Safety Report 5648776-X (Version None)
Quarter: 2008Q1

REPORT INFORMATION
  Report Type: 
  Country: None (occurrence: None)
  Receive Date: 20080304
  Receipt Date: 20080221
  Transmission Date: 20080703
  Serious: Yes (Other)
  Sender: FDA-Public Use
  Company Number: GR-ROCHE-542334

PATIENT
  Sex: Male

DRUGS (2)
  1. PEGASYS [Suspect]
     Route: 065
  2. COPEGUS [Suspect]
     Route: 065

REACTIONS (2)
  - HAEMATOMA [None]
  - THROMBOCYTOPENIA [None]
